FAERS Safety Report 16483863 (Version 1)
Quarter: 2019Q2

REPORT INFORMATION
  Report Type: Spontaneous
  Country: US (occurrence: US)
  Receive Date: 20190516
  Receipt Date: 20190516
  Transmission Date: 20190711
  Serious: Yes (Death)
  Sender: FDA-Public Use
  Company Number: None

PATIENT
  Age: 77 Year
  Sex: Male

DRUGS (4)
  1. PRILOSED [Concomitant]
  2. ESBRIET [Suspect]
     Active Substance: PIRFENIDONE
     Indication: IDIOPATHIC PULMONARY FIBROSIS
     Route: 048
     Dates: start: 20190326
  3. ALBUTEROL. [Suspect]
     Active Substance: ALBUTEROL
  4. CODEINE [Concomitant]
     Active Substance: CODEINE

REACTIONS (1)
  - Death [None]

NARRATIVE: CASE EVENT DATE: 20190503
